FAERS Safety Report 17871321 (Version 1)
Quarter: 2020Q2

REPORT INFORMATION
  Report Type: Spontaneous
  Country: ES (occurrence: ES)
  Receive Date: 20200608
  Receipt Date: 20200608
  Transmission Date: 20200714
  Serious: Yes (Other)
  Sender: FDA-Public Use
  Company Number: ES-TEVA-2020-ES-1245871

PATIENT
  Age: 73 Year
  Sex: Male
  Weight: 75 kg

DRUGS (10)
  1. CEFTRIAXONA (501A) [Suspect]
     Active Substance: CEFTRIAXONE
     Indication: CORONAVIRUS INFECTION
  2. LOPINAVIR/RITONAVIR ACCORD 200 MG/ 50 MG COMPRIMIDOS RECUBIERTOS CON P [Concomitant]
     Active Substance: LOPINAVIR\RITONAVIR
     Indication: CORONAVIRUS INFECTION
     Dosage: 400 MG EVERY 12 HOURS, 1 DOSAGE FORM
     Route: 048
     Dates: start: 20200331, end: 20200407
  3. SINTROM [Concomitant]
     Active Substance: ACENOCOUMAROL
  4. AZITROMICINA (7019A) [Suspect]
     Active Substance: AZITHROMYCIN
     Indication: COVID-19 PNEUMONIA
  5. LOPINAVIR/RITONAVIR ACCORD 200 MG/ 50 MG COMPRIMIDOS RECUBIERTOS CON P [Concomitant]
     Active Substance: LOPINAVIR\RITONAVIR
     Indication: COVID-19 PNEUMONIA
  6. HIDROXICLOROQUINA (2143A) [Suspect]
     Active Substance: HYDROXYCHLOROQUINE
     Indication: COVID-19 PNEUMONIA
  7. AZITROMICINA (7019A) [Suspect]
     Active Substance: AZITHROMYCIN
     Indication: CORONAVIRUS INFECTION
     Dosage: 500 MILLIGRAM DAILY;
     Route: 048
     Dates: start: 20200326, end: 20200401
  8. HIDROXICLOROQUINA (2143A) [Suspect]
     Active Substance: HYDROXYCHLOROQUINE
     Indication: CORONAVIRUS INFECTION
     Dosage: 400 MG EVERY 12 HOURS FOLLOWED BY 200 MG EVERY 12 HOURS
     Route: 048
     Dates: start: 20200327, end: 20200331
  9. CEFTRIAXONA (501A) [Suspect]
     Active Substance: CEFTRIAXONE
     Indication: COVID-19 PNEUMONIA
     Dosage: 2 GRAM
     Route: 065
     Dates: start: 20200326, end: 20200407
  10. HBPMIN - HEPARINA DE BAJO PESO MOLECULAR (HBPM) (SIN ESPECIFICAR) [Concomitant]

REACTIONS (1)
  - Acute kidney injury [Recovered/Resolved]

NARRATIVE: CASE EVENT DATE: 20200326
